FAERS Safety Report 15319780 (Version 1)
Quarter: 2018Q3

REPORT INFORMATION
  Report Type: Report from Study
  Country: GR (occurrence: GR)
  Receive Date: 20180827
  Receipt Date: 20180827
  Transmission Date: 20181010
  Serious: Yes (Hospitalization)
  Sender: FDA-Public Use
  Company Number: GR-ROCHE-2173992

PATIENT
  Sex: Male

DRUGS (4)
  1. KEPPRA [Concomitant]
     Active Substance: LEVETIRACETAM
     Route: 065
  2. ZELBORAF [Suspect]
     Active Substance: VEMURAFENIB
     Indication: INTRAOCULAR MELANOMA
     Dosage: 2X4
     Route: 048
     Dates: start: 201705, end: 20180801
  3. COTELLIC [Suspect]
     Active Substance: COBIMETINIB
     Indication: INTRAOCULAR MELANOMA
     Dosage: 1X3
     Route: 048
     Dates: start: 201705, end: 20180801
  4. CORTISONE [Concomitant]
     Active Substance: CORTISONE\HYDROCORTISONE

REACTIONS (3)
  - Peripheral paralysis [Unknown]
  - Headache [Unknown]
  - Dizziness [Unknown]
